FAERS Safety Report 8642656 (Version 2)
Quarter: 2014Q3

REPORT INFORMATION
  Report Type: Spontaneous
  Country: US (occurrence: US)
  Receive Date: 20120629
  Receipt Date: 20140728
  Transmission Date: 20150326
  Serious: Yes (Other)
  Sender: FDA-Public Use
  Company Number: US-RANBAXY-2012US-57315

PATIENT
  Sex: Female

DRUGS (7)
  1. MUSINEX-D [Concomitant]
     Indication: PYREXIA
  2. ALBUTEROL. [Concomitant]
     Active Substance: ALBUTEROL
     Indication: COUGH
     Dosage: UNK
     Route: 065
  3. Z-PAC [Concomitant]
     Indication: BRONCHITIS
     Dosage: 2 DF/DAY
     Route: 065
  4. OMNICEF [Concomitant]
     Active Substance: CEFDINIR
     Indication: COUGH
     Dosage: UNKNOWN
     Route: 065
  5. OMNICEF [Concomitant]
     Active Substance: CEFDINIR
     Indication: PYREXIA
  6. MINOCYCLINE HYDROCHLORIDE. [Suspect]
     Active Substance: MINOCYCLINE HYDROCHLORIDE
     Indication: ACNE
     Dosage: UNK
     Route: 065
  7. MUSINEX-D [Concomitant]
     Indication: COUGH
     Dosage: UNKNOWN
     Route: 065

REACTIONS (1)
  - Autoimmune hepatitis [Unknown]
